FAERS Safety Report 4922026-1 (Version None)
Quarter: 2006Q1

REPORT INFORMATION
  Report Type: 
  Country: None (occurrence: None)
  Receive Date: 20060222
  Receipt Date: 20060222
  Transmission Date: 20060701
  Serious: Yes (Death, Life-Threatening, Hospitalization)
  Sender: FDA-Public Use
  Company Number: None

PATIENT
  Age: 86 Year
  Sex: Female
  Weight: 75.7507 kg

DRUGS (11)
  1. ASPIRIN [Suspect]
     Indication: PROPHYLAXIS
     Dosage: 162 MG PO DAILY CHRONIC
     Route: 048
  2. DICLOFENAC EPOLAMINE PATCH [Suspect]
     Indication: BACK PAIN
     Dosage: 75 DAILY CHRONIC
  3. METOPROLOL [Concomitant]
  4. LASIX [Concomitant]
  5. ASPIRIN [Concomitant]
  6. FOLVITE [Concomitant]
  7. AVAPRO [Concomitant]
  8. POTASSIUM CHLORIDE [Concomitant]
  9. ISOSORBIDE MONO ER [Concomitant]
  10. ARTHROTEC [Concomitant]
  11. MISOPROSTOL [Suspect]
     Dosage: 200 DAILY

REACTIONS (8)
  - BRADYCARDIA [None]
  - DUODENAL ULCER HAEMORRHAGE [None]
  - HYPOTENSION [None]
  - LOSS OF CONSCIOUSNESS [None]
  - PULSE ABSENT [None]
  - REFUSAL OF TREATMENT BY PATIENT [None]
  - SHOCK [None]
  - UPPER GASTROINTESTINAL HAEMORRHAGE [None]
